FAERS Safety Report 4432026-6 (Version None)
Quarter: 2004Q3

REPORT INFORMATION
  Report Type: 
  Country: None (occurrence: None)
  Receive Date: 20040818
  Receipt Date: 20040730
  Transmission Date: 20050211
  Serious: Yes (Other)
  Sender: FDA-Public Use
  Company Number: USA040774135

PATIENT
  Age: 11 Year
  Sex: 0

DRUGS (1)
  1. STRATTERA [Suspect]
     Dosage: 60 MG/1 DAY
     Dates: start: 20030401

REACTIONS (1)
  - LIVER FUNCTION TEST ABNORMAL [None]
